FAERS Safety Report 14189406 (Version 3)
Quarter: 2018Q1

REPORT INFORMATION
  Report Type: Report from Study
  Country: None (occurrence: US)
  Receive Date: 20171115
  Receipt Date: 20180108
  Transmission Date: 20180508
  Serious: Yes (Other)
  Sender: FDA-Public Use
  Company Number: US-ABBVIE-17K-163-2156700-00

PATIENT
  Age: 57 Year
  Sex: Female

DRUGS (2)
  1. HUMIRA [Suspect]
     Active Substance: ADALIMUMAB
     Indication: PSORIASIS
     Route: 058
     Dates: start: 2016
  2. HUMIRA [Suspect]
     Active Substance: ADALIMUMAB
     Indication: PSORIATIC ARTHROPATHY

REACTIONS (6)
  - Malaise [Recovering/Resolving]
  - Fatigue [Recovering/Resolving]
  - Aortic thrombosis [Recovering/Resolving]
  - Haemoglobin decreased [Recovered/Resolved]
  - Metastatic gastric cancer [Not Recovered/Not Resolved]
  - Pallor [Recovering/Resolving]

NARRATIVE: CASE EVENT DATE: 201709
